FAERS Safety Report 18267562 (Version 1)
Quarter: 2020Q3

REPORT INFORMATION
  Report Type: Spontaneous
  Country: US (occurrence: US)
  Receive Date: 20200915
  Receipt Date: 20200915
  Transmission Date: 20201103
  Serious: No
  Sender: FDA-Public Use
  Company Number: None

PATIENT
  Age: 49 Year
  Sex: Female
  Weight: 54.9 kg

DRUGS (5)
  1. CALCIUM SUPPLEMENT [Concomitant]
     Active Substance: CALCIUM
  2. EQUATE COOL AND HEAT PAIN RELIEVING LIQUID [Suspect]
     Active Substance: MENTHOL
     Indication: OSTEOARTHRITIS
     Dosage: ?          OTHER STRENGTH:16% MENTHOL;?
     Route: 061
     Dates: start: 20200401, end: 20200914
  3. EQUATE COOL AND HEAT PAIN RELIEVING LIQUID [Suspect]
     Active Substance: MENTHOL
     Indication: BACK PAIN
     Dosage: ?          OTHER STRENGTH:16% MENTHOL;?
     Route: 061
     Dates: start: 20200401, end: 20200914
  4. MULTIVITAMIN [Concomitant]
     Active Substance: VITAMINS
  5. TYLENOL/ADVIL [Concomitant]

REACTIONS (3)
  - Burning sensation [None]
  - Erythema [None]
  - Pain [None]

NARRATIVE: CASE EVENT DATE: 20200914
